FAERS Safety Report 7980867-0 (Version None)
Quarter: 2011Q4

REPORT INFORMATION
  Report Type: 
  Country: None (occurrence: None)
  Receive Date: 20111214
  Receipt Date: 20111203
  Transmission Date: 20120403
  Serious: Yes (Hospitalization, Other)
  Sender: FDA-Public Use
  Company Number: US-ELI_LILLY_AND_COMPANY-US201105007931

PATIENT
  Sex: Female

DRUGS (7)
  1. FORTEO [Suspect]
     Indication: OSTEOPOROSIS
     Dosage: 20 UG, QD
     Route: 065
     Dates: start: 20110401
  2. VITAMIN D [Concomitant]
  3. FORTEO [Suspect]
     Dosage: 20 UG, QD
     Route: 065
  4. TRAZODONE HCL [Concomitant]
     Indication: SLEEP DISORDER
  5. CALCIUM [Concomitant]
  6. FORTEO [Suspect]
     Dosage: 20 UG, QD
     Route: 065
  7. FORTEO [Suspect]
     Dosage: 20 UG, QD

REACTIONS (7)
  - INTERVERTEBRAL DISC PROTRUSION [None]
  - HIP ARTHROPLASTY [None]
  - PAIN [None]
  - MOVEMENT DISORDER [None]
  - MUSCLE SPASMS [None]
  - FEMUR FRACTURE [None]
  - ARTHRALGIA [None]
